FAERS Safety Report 5256572-0 (Version None)
Quarter: 2007Q1

REPORT INFORMATION
  Report Type: 
  Country: None (occurrence: None)
  Receive Date: 20070306
  Receipt Date: 20070227
  Transmission Date: 20070707
  Serious: Yes (Other)
  Sender: FDA-Public Use
  Company Number: FI-NOVOPROD-250988

PATIENT
  Sex: Female
  Weight: 65 kg

DRUGS (15)
  1. NOVOSEVEN [Suspect]
     Indication: CEREBRAL HAEMORRHAGE
     Dosage: 80 UG/KG, SINGLE
     Route: 042
     Dates: start: 20060215, end: 20060215
  2. PANTOPRAZOLE SODIUM [Concomitant]
     Indication: PROPHYLAXIS AGAINST GASTROINTESTINAL ULCER
     Dosage: 40 MG, QD
     Route: 048
     Dates: start: 20060215
  3. PIVMECILLINAM [Concomitant]
     Indication: URINARY TRACT INFECTION
     Dosage: 600 MG, QD
     Route: 048
     Dates: start: 20060218, end: 20060222
  4. LABETALOL HCL [Concomitant]
     Indication: HYPERTENSION
     Dosage: UNK, QD
     Route: 042
     Dates: start: 20060215, end: 20060216
  5. LABETALOL HCL [Concomitant]
     Dosage: UNK, QD
     Dates: start: 20060220, end: 20060220
  6. ENALAPRIL MALEATE [Concomitant]
     Indication: HYPERTENSION
     Dosage: UNK, QD
     Route: 042
     Dates: start: 20060215
  7. ACETAMINOPHEN [Concomitant]
     Indication: PAIN
     Dosage: UNK, QD
     Dates: start: 20060216
  8. ACETAMINOPHEN [Concomitant]
     Dosage: 1.5 G, QD
     Route: 048
     Dates: start: 20060221
  9. GRANISETRON  HCL [Concomitant]
     Indication: NAUSEA
     Dosage: UNK, QD
     Dates: start: 20060215, end: 20060216
  10. SODIUM PICOSULFATE [Concomitant]
     Indication: CONSTIPATION
     Dosage: UNK, QD
     Dates: start: 20060219, end: 20060220
  11. DILTIAZEMI HYDROCHLORIDUM [Concomitant]
     Dosage: UNK, QD
     Dates: start: 19990101, end: 20060215
  12. SIMVASTATIN [Concomitant]
     Dosage: UNK, QD
     Dates: end: 20060215
  13. ATORVASTATIN [Concomitant]
     Indication: HYPERCHOLESTEROLAEMIA
     Dosage: UNK, QD
     Dates: start: 20060306
  14. LOSARTAN POTASSIUM AND HYDROCHLOROTHIAZIDE [Concomitant]
     Indication: HYPERTENSION
     Dates: start: 20060221
  15. ACETYLSALICYLIC ACID SRT [Concomitant]
     Indication: THROMBOSIS PROPHYLAXIS
     Dates: start: 19960101, end: 20060215

REACTIONS (1)
  - ANGINA PECTORIS [None]
